FAERS Safety Report 5307423-7 (Version None)
Quarter: 2007Q2

REPORT INFORMATION
  Report Type: 
  Country: None (occurrence: None)
  Receive Date: 20070425
  Receipt Date: 20070416
  Transmission Date: 20071010
  Serious: Yes (Hospitalization, Other)
  Sender: FDA-Public Use
  Company Number: IE-ABBOTT-07P-229-0361427-00

PATIENT
  Sex: Female

DRUGS (2)
  1. HUMIRA [Suspect]
     Indication: RHEUMATOID ARTHRITIS
     Route: 058
     Dates: start: 20060601, end: 20061001
  2. METHOTREXATE [Concomitant]
     Indication: RHEUMATOID ARTHRITIS
     Dates: start: 20050101

REACTIONS (5)
  - ANGIOSARCOMA [None]
  - CHEST X-RAY ABNORMAL [None]
  - INTRAVASCULAR PAPILLARY ENDOTHELIAL HYPERPLASIA [None]
  - RESPIRATORY DISORDER [None]
  - SARCOMA [None]
